FAERS Safety Report 6023775-7 (Version None)
Quarter: 2008Q4

REPORT INFORMATION
  Report Type: 
  Country: None (occurrence: None)
  Receive Date: 20081230
  Receipt Date: 20081225
  Transmission Date: 20090506
  Serious: Yes (Hospitalization)
  Sender: FDA-Public Use
  Company Number: JP-ASTRAZENECA-2008AP09882

PATIENT
  Age: 64 Year
  Sex: Male

DRUGS (3)
  1. CASODEX [Suspect]
     Indication: PROSTATE CANCER
     Route: 048
     Dates: start: 20081222
  2. PHENOBARBITAL TAB [Concomitant]
     Indication: PROSTATE CANCER
     Route: 065
  3. TAKEPRON [Concomitant]
     Indication: PROSTATE CANCER
     Route: 048

REACTIONS (1)
  - PLATELET COUNT DECREASED [None]
